FAERS Safety Report 23748151 (Version 1)
Quarter: 2024Q2

REPORT INFORMATION
  Report Type: Report from Study
  Country: US (occurrence: US)
  Receive Date: 20240416
  Receipt Date: 20240416
  Transmission Date: 20240716
  Serious: Yes (Other)
  Sender: FDA-Public Use
  Company Number: US-TAKEDA-2024TUS028447

PATIENT
  Sex: Female

DRUGS (2)
  1. VEDOLIZUMAB [Suspect]
     Active Substance: VEDOLIZUMAB
     Indication: Proctitis ulcerative
     Dosage: 300 MILLIGRAM
     Route: 042
     Dates: start: 20231025
  2. VEDOLIZUMAB [Suspect]
     Active Substance: VEDOLIZUMAB
     Indication: Colitis ulcerative

REACTIONS (5)
  - Colitis ulcerative [Unknown]
  - Fear [Unknown]
  - Poor venous access [Unknown]
  - Product contamination [Not Recovered/Not Resolved]
  - Product dose omission issue [Unknown]
